FAERS Safety Report 9199938 (Version 1)
Quarter: 2013Q1

REPORT INFORMATION
  Report Type: Spontaneous
  Country: US (occurrence: US)
  Receive Date: 20130329
  Receipt Date: 20130329
  Transmission Date: 20140127
  Serious: Yes (Hospitalization)
  Sender: FDA-Public Use
  Company Number: US-GLAXOSMITHKLINE-A0774066A

PATIENT
  Age: 69 Year
  Sex: Female
  Weight: 93.6 kg

DRUGS (1)
  1. AVANDIA [Suspect]
     Indication: TYPE 2 DIABETES MELLITUS
     Route: 048
     Dates: start: 20010721, end: 20070628

REACTIONS (4)
  - Myocardial infarction [Unknown]
  - Fatigue [Unknown]
  - Cerebrovascular accident [Unknown]
  - Diabetic complication [Unknown]
